FAERS Safety Report 10165189 (Version 1)
Quarter: 2014Q2

REPORT INFORMATION
  Report Type: Spontaneous
  Country: US (occurrence: US)
  Receive Date: 20140510
  Receipt Date: 20140510
  Transmission Date: 20141212
  Serious: No
  Sender: FDA-Public Use
  Company Number: US-BRISTOL-MYERS SQUIBB COMPANY-19736776

PATIENT
  Age: 58 Year
  Sex: Male
  Weight: 105.67 kg

DRUGS (2)
  1. BYDUREON [Suspect]
     Indication: TYPE 2 DIABETES MELLITUS
     Dosage: PRESCRIPTION #:  462993
     Dates: start: 2013
  2. METFORMIN [Concomitant]

REACTIONS (1)
  - Injection site mass [Not Recovered/Not Resolved]
